FAERS Safety Report 9148711 (Version 2)
Quarter: 2013Q1

REPORT INFORMATION
  Report Type: Spontaneous
  Country: US (occurrence: FR)
  Receive Date: 20130308
  Receipt Date: 20130318
  Transmission Date: 20140127
  Serious: Yes (Hospitalization, Other)
  Sender: FDA-Public Use
  Company Number: 2013SP002759

PATIENT
  Age: 10 Year
  Sex: Female
  Weight: 30 kg

DRUGS (6)
  1. VANCOMYCIN [Suspect]
     Indication: PNEUMONIA
     Route: 042
     Dates: start: 20130115, end: 20130129
  2. VANCOMYCIN [Suspect]
     Indication: PLEURISY
     Route: 042
     Dates: start: 20130115, end: 20130129
  3. DALACINE [Suspect]
     Indication: PNEUMONIA
     Route: 042
     Dates: start: 20130115, end: 20130129
  4. DALACINE [Suspect]
     Indication: PLEURISY
     Route: 042
     Dates: start: 20130115, end: 20130129
  5. CLAFORAN [Suspect]
     Indication: PNEUMONIA
     Route: 042
     Dates: start: 20130115, end: 20130129
  6. CLAFORAN [Suspect]
     Indication: PLEURISY
     Route: 042
     Dates: start: 20130115, end: 20130129

REACTIONS (6)
  - Hepatocellular injury [Recovered/Resolved]
  - Pyrexia [Recovered/Resolved]
  - Neutropenia [Unknown]
  - Hyponatraemia [Unknown]
  - Lymphopenia [Unknown]
  - Cholestasis [Unknown]
